FAERS Safety Report 5709531-5 (Version None)
Quarter: 2008Q2

REPORT INFORMATION
  Report Type: 
  Country: None (occurrence: None)
  Receive Date: 20080418
  Receipt Date: 20080408
  Transmission Date: 20081010
  Serious: Yes (Hospitalization, Other)
  Sender: FDA-Public Use
  Company Number: DE-ABBOTT-08P-062-0443479-00

PATIENT
  Sex: Male
  Weight: 72 kg

DRUGS (3)
  1. HUMIRA [Suspect]
     Indication: RHEUMATOID ARTHRITIS
     Route: 058
     Dates: start: 20070817, end: 20080101
  2. PREDNISOLONE [Concomitant]
     Indication: RHEUMATOID ARTHRITIS
  3. NEBIVOLOL HCL [Concomitant]
     Indication: HYPERTENSION

REACTIONS (6)
  - BONE PAIN [None]
  - HEPATIC STEATOSIS [None]
  - PANCREATIC DUCT DILATATION [None]
  - PANCREATITIS [None]
  - PSOAS ABSCESS [None]
  - PYREXIA [None]
